FAERS Safety Report 19961936 (Version 1)
Quarter: 2021Q4

REPORT INFORMATION
  Report Type: Spontaneous
  Country: IN (occurrence: IN)
  Receive Date: 20211018
  Receipt Date: 20211018
  Transmission Date: 20220303
  Serious: Yes (Other)
  Sender: FDA-Public Use
  Company Number: IN-CIPLA LTD.-2021IN06786

PATIENT

DRUGS (1)
  1. WARFARIN [Suspect]
     Active Substance: WARFARIN
     Indication: Cardiac valve disease
     Dosage: UNK
     Route: 065

REACTIONS (3)
  - Coagulation test abnormal [Unknown]
  - Anaemia [Unknown]
  - Exposure during pregnancy [Unknown]
